FAERS Safety Report 16780740 (Version 2)
Quarter: 2019Q3

REPORT INFORMATION
  Report Type: Spontaneous
  Country: MM (occurrence: MM)
  Receive Date: 20190906
  Receipt Date: 20190911
  Transmission Date: 20191005
  Serious: Yes (Hospitalization, Disabling)
  Sender: FDA-Public Use
  Company Number: MM-JNJFOC-20190831328

PATIENT
  Age: 22 Year
  Sex: Male
  Weight: 43.2 kg

DRUGS (13)
  1. DELAMANID [Suspect]
     Active Substance: DELAMANID
     Indication: TUBERCULOSIS
     Route: 048
     Dates: start: 20180622
  2. CLOFAZIMINE [Suspect]
     Active Substance: CLOFAZIMINE
     Route: 048
  3. AMOXICLAV [Suspect]
     Active Substance: AMOXICILLIN\CLAVULANATE POTASSIUM
     Indication: TUBERCULOSIS
     Route: 048
     Dates: start: 20180622, end: 20190222
  4. BEDAQUILINE [Suspect]
     Active Substance: BEDAQUILINE
     Route: 048
  5. IMIPENEM AND CILASTATIN [Suspect]
     Active Substance: CILASTATIN SODIUM\IMIPENEM
     Indication: TUBERCULOSIS
     Route: 042
     Dates: start: 20180622, end: 20190222
  6. PARA-AMINOSALICYLIC ACID [Suspect]
     Active Substance: AMINOSALICYLIC ACID
     Indication: TUBERCULOSIS
     Route: 048
     Dates: start: 20180622
  7. PYRIDOXINE [Concomitant]
     Active Substance: PYRIDOXINE
     Indication: PROPHYLAXIS
     Route: 048
     Dates: start: 20180622
  8. LINEZOLID. [Suspect]
     Active Substance: LINEZOLID
     Indication: TUBERCULOSIS
     Route: 048
     Dates: start: 20180622, end: 20190821
  9. CLOFAZIMINE [Suspect]
     Active Substance: CLOFAZIMINE
     Indication: TUBERCULOSIS
     Dosage: FOR 2 MONTHS FOLLOWED BY
     Route: 048
     Dates: start: 20180622
  10. TDF [Concomitant]
     Active Substance: DILOXANIDE FUROATE\TINIDAZOLE
     Indication: ANTIRETROVIRAL THERAPY
     Route: 048
     Dates: start: 20180525
  11. NEVIRAPINE. [Concomitant]
     Active Substance: NEVIRAPINE
     Indication: ANTIRETROVIRAL THERAPY
     Route: 048
     Dates: start: 20180525
  12. BEDAQUILINE [Suspect]
     Active Substance: BEDAQUILINE
     Indication: TUBERCULOSIS
     Dosage: FOR 2 WEEKS FOLLOWED BY
     Route: 048
     Dates: start: 20180622
  13. 3TC [Concomitant]
     Active Substance: LAMIVUDINE
     Indication: ANTIRETROVIRAL THERAPY
     Route: 048
     Dates: start: 20180525

REACTIONS (1)
  - Neuropathy peripheral [Unknown]

NARRATIVE: CASE EVENT DATE: 20190718
